FAERS Safety Report 4536479-4 (Version None)
Quarter: 2004Q4

REPORT INFORMATION
  Report Type: 
  Country: None (occurrence: None)
  Receive Date: 20041220
  Receipt Date: 20041210
  Transmission Date: 20050328
  Serious: No
  Sender: FDA-Public Use
  Company Number: 04H-163-0283496-00

PATIENT

DRUGS (2)
  1. SODIUM BICARBONATE 8.4% INJECTION, USP, 50MEQ TOTAL, 50 ML FT VIAL (SO [Suspect]
     Indication: FLUID REPLACEMENT
     Dosage: 30 ML, ONCE, INTRAVENOUS
     Route: 042
     Dates: start: 20040101, end: 20040101
  2. GLUCOSE [Concomitant]

REACTIONS (3)
  - RASH [None]
  - RESPIRATORY DISTRESS [None]
  - WHEEZING [None]
